FAERS Safety Report 5019233-9 (Version None)
Quarter: 2006Q2

REPORT INFORMATION
  Report Type: 
  Country: None (occurrence: None)
  Receive Date: 20060606
  Receipt Date: 20060531
  Transmission Date: 20061013
  Serious: Yes (Hospitalization)
  Sender: FDA-Public Use
  Company Number: US-SANOFI-SYNTHELABO-F01200601340

PATIENT
  Sex: Male

DRUGS (7)
  1. LEUCOVORIN [Suspect]
     Route: 042
     Dates: start: 20060404, end: 20060404
  2. FLUOROURACIL [Suspect]
     Route: 040
     Dates: start: 20060404, end: 20060404
  3. AVASTIN [Suspect]
     Route: 042
     Dates: start: 20060404, end: 20060404
  4. DECADRON SRC [Concomitant]
     Dosage: UNK
     Route: 065
     Dates: start: 20060321, end: 20060404
  5. ALOXI [Concomitant]
     Dosage: UNK
     Route: 065
     Dates: start: 20060321, end: 20060404
  6. TYLENOL (CAPLET) [Concomitant]
     Dosage: UNK
     Route: 065
     Dates: start: 20060321, end: 20060404
  7. OXALIPLATIN [Suspect]
     Indication: COLORECTAL CANCER METASTATIC
     Route: 042
     Dates: start: 20060404, end: 20060404

REACTIONS (1)
  - SYNCOPE [None]
